FAERS Safety Report 10295477 (Version 2)
Quarter: 2014Q3

REPORT INFORMATION
  Report Type: Spontaneous
  Country: US (occurrence: US)
  Receive Date: 20140710
  Receipt Date: 20140710
  Transmission Date: 20150326
  Serious: No
  Sender: FDA-Public Use
  Company Number: US-PURDUE-USA-2014-0113231

PATIENT
  Sex: Female

DRUGS (1)
  1. BUTRANS [Suspect]
     Active Substance: BUPRENORPHINE
     Indication: PAIN
     Dosage: 5 MCG/HR, WEEKLY
     Route: 062
     Dates: start: 201311

REACTIONS (6)
  - Drug effect decreased [Unknown]
  - Abdominal discomfort [Unknown]
  - Product adhesion issue [Unknown]
  - Product quality issue [Unknown]
  - Product odour abnormal [Unknown]
  - Device leakage [Unknown]
